FAERS Safety Report 5916434-X (Version None)
Quarter: 2008Q4

REPORT INFORMATION
  Report Type: 
  Country: None (occurrence: None)
  Receive Date: 20081013
  Receipt Date: 20080924
  Transmission Date: 20090506
  Serious: No
  Sender: FDA-Public Use
  Company Number: US-BAYER-200834179NA

PATIENT
  Sex: Female

DRUGS (1)
  1. MIRENA [Suspect]
     Indication: CONTRACEPTION
     Route: 015
     Dates: start: 20080101, end: 20080727

REACTIONS (7)
  - BACTERIAL CULTURE POSITIVE [None]
  - COMPLICATION OF DEVICE INSERTION [None]
  - INTRA-UTERINE CONTRACEPTIVE DEVICE EXPELLED [None]
  - MENSTRUATION DELAYED [None]
  - POST PROCEDURAL HAEMORRHAGE [None]
  - PREGNANCY [None]
  - VULVOVAGINAL PAIN [None]
